FAERS Safety Report 12746806 (Version 2)
Quarter: 2017Q3

REPORT INFORMATION
  Report Type: Spontaneous
  Country: US (occurrence: US)
  Receive Date: 20160915
  Receipt Date: 20170914
  Transmission Date: 20171127
  Serious: No
  Sender: FDA-Public Use
  Company Number: US-ASTELLAS-2015US032437

PATIENT
  Age: 82 Year
  Sex: Male

DRUGS (2)
  1. XTANDI [Suspect]
     Active Substance: ENZALUTAMIDE
     Indication: PROSTATE CANCER METASTATIC
     Dosage: 80 MG, ONCE DAILY (TWO 40MG PILLS DAILY)
     Route: 065
     Dates: start: 20170311
  2. XTANDI [Suspect]
     Active Substance: ENZALUTAMIDE
     Indication: PROSTATE CANCER
     Route: 065

REACTIONS (8)
  - Dizziness [Unknown]
  - Treatment noncompliance [Unknown]
  - Weight decreased [Unknown]
  - Arthralgia [Unknown]
  - Underdose [Unknown]
  - Bacterial infection [Unknown]
  - Rhinorrhoea [Unknown]
  - Night sweats [Unknown]

NARRATIVE: CASE EVENT DATE: 201509
